FAERS Safety Report 5701660-5 (Version None)
Quarter: 2008Q2

REPORT INFORMATION
  Report Type: 
  Country: None (occurrence: None)
  Receive Date: 20080411
  Receipt Date: 20021021
  Transmission Date: 20081010
  Serious: Yes (Other)
  Sender: FDA-Public Use
  Company Number: GB-JNJFOC-20080401411

PATIENT
  Age: 56 Year
  Sex: Female

DRUGS (3)
  1. MOTRIN [Suspect]
     Indication: ARTHRITIS
  2. AZATHIOPRINE [Concomitant]
  3. VITAMIN B-12 [Concomitant]

REACTIONS (3)
  - BLINDNESS [None]
  - OPTIC ATROPHY [None]
  - OPTIC NEUROPATHY [None]
